FAERS Safety Report 19661186 (Version 1)
Quarter: 2021Q3

REPORT INFORMATION
  Report Type: Spontaneous
  Country: US (occurrence: US)
  Receive Date: 20210805
  Receipt Date: 20210805
  Transmission Date: 20211014
  Serious: Yes (Disabling)
  Sender: FDA-Public Use
  Company Number: None

PATIENT
  Age: 55 Year
  Sex: Female
  Weight: 72 kg

DRUGS (2)
  1. LEVOTHYROXINE 100 MCG [Suspect]
     Active Substance: LEVOTHYROXINE
     Indication: THYROID DISORDER
     Dosage: ?          QUANTITY:1 TABLET(S);?
     Route: 048
     Dates: start: 20210501, end: 20210722
  2. ZYRTEC [Concomitant]
     Active Substance: CETIRIZINE HYDROCHLORIDE

REACTIONS (7)
  - Manufacturing issue [None]
  - Renal pain [None]
  - Musculoskeletal stiffness [None]
  - Back pain [None]
  - Rash erythematous [None]
  - Product odour abnormal [None]
  - Product tampering [None]

NARRATIVE: CASE EVENT DATE: 20210501
